FAERS Safety Report 9046921 (Version 1)
Quarter: 2013Q1

REPORT INFORMATION
  Report Type: Report from Study
  Country: CA (occurrence: CA)
  Receive Date: 20130204
  Receipt Date: 20130204
  Transmission Date: 20140127
  Serious: Yes (Other)
  Sender: FDA-Public Use
  Company Number: CA-JNJFOC-20130113640

PATIENT
  Sex: Male
  Weight: 68.95 kg

DRUGS (3)
  1. REMICADE [Suspect]
     Indication: COLITIS ULCERATIVE
     Dosage: SECOND DOSE
     Route: 042
     Dates: start: 20121128
  2. REMICADE [Suspect]
     Indication: COLITIS ULCERATIVE
     Route: 042
     Dates: start: 20121107
  3. REMICADE [Suspect]
     Indication: COLITIS ULCERATIVE
     Dosage: THIRD DOSE
     Route: 042
     Dates: start: 20121218

REACTIONS (2)
  - Colitis ulcerative [Not Recovered/Not Resolved]
  - Weight decreased [Not Recovered/Not Resolved]
